FAERS Safety Report 9163052 (Version 1)
Quarter: 2013Q1

REPORT INFORMATION
  Report Type: Spontaneous
  Country: US (occurrence: None)
  Receive Date: 20130313
  Receipt Date: 20130313
  Transmission Date: 20140127
  Serious: Yes (Life-Threatening)
  Sender: FDA-Public Use
  Company Number: None

PATIENT
  Age: 54 Year
  Sex: Male
  Weight: 74.84 kg

DRUGS (2)
  1. ZYTHROMAX [Suspect]
     Indication: BRONCHITIS
     Dates: start: 20130217, end: 20130219
  2. LIPITOR [Suspect]

REACTIONS (6)
  - Feeling abnormal [None]
  - Arrhythmia [None]
  - Palpitations [None]
  - Feeling abnormal [None]
  - Gastrointestinal pain [None]
  - Drug interaction [None]
